FAERS Safety Report 17853503 (Version 4)
Quarter: 2020Q4

REPORT INFORMATION
  Report Type: Report from Study
  Country: BE (occurrence: BE)
  Receive Date: 20200602
  Receipt Date: 20201112
  Transmission Date: 20210113
  Serious: Yes (Hospitalization)
  Sender: FDA-Public Use
  Company Number: BE-TAKEDA-2020TUS024372

PATIENT
  Sex: Female

DRUGS (2)
  1. INFLIXIMAB [Concomitant]
     Active Substance: INFLIXIMAB
     Dosage: UNK
     Dates: start: 20180208
  2. VEDOLIZUMAB [Suspect]
     Active Substance: VEDOLIZUMAB
     Indication: INFLAMMATORY BOWEL DISEASE
     Dosage: UNK
     Route: 042
     Dates: start: 20170309, end: 20180125

REACTIONS (2)
  - Urinary tract infection [Recovered/Resolved]
  - Vaginal infection [Recovered/Resolved]

NARRATIVE: CASE EVENT DATE: 20200127
